FAERS Safety Report 6903793-4 (Version None)
Quarter: 2010Q3

REPORT INFORMATION
  Report Type: 
  Country: None (occurrence: None)
  Receive Date: 20100804
  Receipt Date: 20081224
  Transmission Date: 20110219
  Serious: No
  Sender: FDA-Public Use
  Company Number: US-PFIZER INC-2008159688

PATIENT
  Sex: Female

DRUGS (4)
  1. LYRICA [Suspect]
     Indication: PRURITUS
     Dosage: 25 MG, 1X/DAY
     Dates: start: 20081218
  2. FLECAINIDE ACETATE [Concomitant]
     Dosage: UNK
  3. LANOXIN [Concomitant]
     Dosage: UNK
  4. DRUG, UNSPECIFIED [Concomitant]
     Dosage: UNK

REACTIONS (1)
  - PRURITUS [None]
